FAERS Safety Report 4808723-7 (Version None)
Quarter: 2005Q4

REPORT INFORMATION
  Report Type: 
  Country: None (occurrence: None)
  Receive Date: 20051021
  Receipt Date: 20030908
  Transmission Date: 20060501
  Serious: No
  Sender: FDA-Public Use
  Company Number: EWC031036791

PATIENT
  Age: 42 Year
  Sex: Male
  Weight: 95 kg

DRUGS (5)
  1. ZYPREXA [Suspect]
     Indication: SCHIZOAFFECTIVE DISORDER
     Dosage: 15 MG/DAY
     Dates: start: 20000502, end: 20030906
  2. EFEXOR (VENLAFAXNE HYDROCHLORIDE) [Concomitant]
  3. LORAZEPAM [Concomitant]
  4. LORAMET (LORMETAZEPAM) [Concomitant]
  5. DIAMICRON (GLICLAZIDE) [Concomitant]

REACTIONS (3)
  - DIABETIC COMPLICATION [None]
  - LEUKOCYTOSIS [None]
  - WEIGHT INCREASED [None]
